APPROVED DRUG PRODUCT: ESOMEPRAZOLE MAGNESIUM
Active Ingredient: ESOMEPRAZOLE MAGNESIUM
Strength: EQ 20MG BASE
Dosage Form/Route: TABLET, DELAYED RELEASE;ORAL
Application: A214473 | Product #001
Applicant: AUROBINDO PHARMA LTD
Approved: Jul 12, 2023 | RLD: No | RS: No | Type: OTC